FAERS Safety Report 22126198 (Version 1)
Quarter: 2023Q1

REPORT INFORMATION
  Report Type: Spontaneous
  Country: US (occurrence: US)
  Receive Date: 20230322
  Receipt Date: 20230322
  Transmission Date: 20230418
  Serious: No
  Sender: FDA-Public Use
  Company Number: US-ALLERGAN-2234456US

PATIENT
  Age: 66 Year
  Sex: Female
  Weight: 80.73 kg

DRUGS (3)
  1. LATISSE [Suspect]
     Active Substance: BIMATOPROST
     Indication: Growth of eyelashes
     Dosage: UNK UNK, QD
     Dates: start: 20220815, end: 20220815
  2. VITAMIN D2 [Concomitant]
     Active Substance: ERGOCALCIFEROL
     Indication: Product used for unknown indication
  3. RETIN-A [Concomitant]
     Active Substance: TRETINOIN
     Indication: Product used for unknown indication

REACTIONS (2)
  - Eye pain [Unknown]
  - Eyelid rash [Recovered/Resolved]

NARRATIVE: CASE EVENT DATE: 20220816
